FAERS Safety Report 10226764 (Version 1)
Quarter: 2014Q2

REPORT INFORMATION
  Report Type: Spontaneous
  Country: US (occurrence: US)
  Receive Date: 20140610
  Receipt Date: 20140610
  Transmission Date: 20141212
  Serious: Yes (Hospitalization, Other)
  Sender: FDA-Public Use
  Company Number: US-ROCHE-1411041

PATIENT
  Sex: Female

DRUGS (10)
  1. TORADOL [Suspect]
     Indication: PRODUCT USED FOR UNKNOWN INDICATION
     Route: 065
  2. SULFASALAZINE [Concomitant]
  3. OMEPRAZOLE [Concomitant]
  4. METRONIDAZOLE [Concomitant]
  5. ESTRADIOL [Concomitant]
  6. PRAVASTATIN [Concomitant]
  7. LYRICA [Concomitant]
  8. ELAVIL (UNITED STATES) [Concomitant]
  9. PROPRANOLOL [Concomitant]
  10. CLONAZEPAM [Concomitant]
     Route: 065

REACTIONS (7)
  - Crohn^s disease [Unknown]
  - Colostomy [Unknown]
  - Pain [Unknown]
  - Discomfort [Unknown]
  - Neuropathy peripheral [Unknown]
  - Fibromyalgia [Unknown]
  - Drug hypersensitivity [Unknown]
